FAERS Safety Report 9057374 (Version 1)
Quarter: 2013Q1

REPORT INFORMATION
  Report Type: Spontaneous
  Country: FR (occurrence: FR)
  Receive Date: 20130204
  Receipt Date: 20130204
  Transmission Date: 20140127
  Serious: Yes (Other)
  Sender: FDA-Public Use
  Company Number: PHHY2013FR008477

PATIENT
  Sex: Female

DRUGS (1)
  1. SUXAMETHONIUM CHLORIDE [Suspect]
     Indication: ENDOTRACHEAL INTUBATION
     Dosage: 1 MG/KG, UNK
     Route: 042

REACTIONS (5)
  - Circulatory collapse [Unknown]
  - Pneumothorax [Unknown]
  - Oxygen saturation decreased [Unknown]
  - Bradycardia [Unknown]
  - Hyperkalaemia [Unknown]
